FAERS Safety Report 18846154 (Version 1)
Quarter: 2021Q1

REPORT INFORMATION
  Report Type: Spontaneous
  Country: US (occurrence: US)
  Receive Date: 20210203
  Receipt Date: 20210203
  Transmission Date: 20210419
  Serious: Yes (Other)
  Sender: FDA-Public Use
  Company Number: US-BAXTER-2021BAX001953

PATIENT
  Sex: Male

DRUGS (8)
  1. PROCARBAZINE [Suspect]
     Active Substance: PROCARBAZINE
     Indication: MALIGNANT MELANOMA
  2. CYCLOPHOSPHAMIDE FOR INJECTION, USP [Suspect]
     Active Substance: CYCLOPHOSPHAMIDE
     Indication: MALIGNANT MELANOMA
  3. LOMUSTINE. [Suspect]
     Active Substance: LOMUSTINE
     Indication: DIFFUSE CUTANEOUS MASTOCYTOSIS
     Dosage: MONTHLY CYCLES (CCNU)
     Route: 048
     Dates: start: 19771129, end: 19780124
  4. VINCRISTINE [Suspect]
     Active Substance: VINCRISTINE
     Indication: MALIGNANT MELANOMA
  5. VINCRISTINE [Suspect]
     Active Substance: VINCRISTINE
     Indication: DIFFUSE CUTANEOUS MASTOCYTOSIS
     Dosage: ON DAY 1
     Route: 042
     Dates: start: 19771129, end: 19780124
  6. CYCLOPHOSPHAMIDE FOR INJECTION, USP [Suspect]
     Active Substance: CYCLOPHOSPHAMIDE
     Indication: DIFFUSE CUTANEOUS MASTOCYTOSIS
     Dosage: MONTHLY CYCLES
     Route: 042
     Dates: start: 19771129, end: 19780124
  7. LOMUSTINE. [Suspect]
     Active Substance: LOMUSTINE
     Indication: MALIGNANT MELANOMA
  8. PROCARBAZINE [Suspect]
     Active Substance: PROCARBAZINE
     Indication: DIFFUSE CUTANEOUS MASTOCYTOSIS
     Dosage: MONTHLY CYCLES DAILY
     Route: 048
     Dates: start: 19771129, end: 19780124

REACTIONS (2)
  - Haematotoxicity [Unknown]
  - Metastases to skin [Unknown]
